FAERS Safety Report 21980395 (Version 3)
Quarter: 2024Q2

REPORT INFORMATION
  Report Type: Report from Study
  Country: US (occurrence: US)
  Receive Date: 20230211
  Receipt Date: 20240612
  Transmission Date: 20240715
  Serious: Yes (Hospitalization)
  Sender: FDA-Public Use
  Company Number: US-ABBVIE-4300726

PATIENT
  Age: 71 Year
  Sex: Male

DRUGS (5)
  1. RINVOQ [Suspect]
     Active Substance: UPADACITINIB
     Indication: Product used for unknown indication
     Dosage: FORM STRENGTH : 30 MILLIGRAM
     Route: 048
     Dates: start: 20230203
  2. RINVOQ [Suspect]
     Active Substance: UPADACITINIB
     Indication: Product used for unknown indication
     Dosage: FORM STRENGTH; 45 MILLIGRAM?FREQUENCY EVERY OTHER DAY.
     Route: 048
     Dates: start: 2022, end: 202302
  3. RINVOQ [Suspect]
     Active Substance: UPADACITINIB
     Indication: Product used for unknown indication
     Dosage: FORM STRENGTH; 45 MILLIGRAM?LAST ADMIN DATE: 2022
     Route: 048
     Dates: start: 20221112
  4. PREDNISONE [Concomitant]
     Active Substance: PREDNISONE
     Indication: Product used for unknown indication
  5. PREDNISONE [Concomitant]
     Active Substance: PREDNISONE
     Indication: Product used for unknown indication
     Dosage: DOSE INCREASED

REACTIONS (10)
  - Cardiac disorder [Recovering/Resolving]
  - Colitis ulcerative [Unknown]
  - Skin fissures [Not Recovered/Not Resolved]
  - Skin abrasion [Recovered/Resolved]
  - Infection [Unknown]
  - Impaired healing [Recovered/Resolved]
  - Skin fissures [Recovered/Resolved]
  - Liver disorder [Unknown]
  - Pain of skin [Recovered/Resolved]
  - Pain of skin [Not Recovered/Not Resolved]

NARRATIVE: CASE EVENT DATE: 20221101
